FAERS Safety Report 21920647 (Version 1)
Quarter: 2023Q1

REPORT INFORMATION
  Report Type: Spontaneous
  Country: US (occurrence: None)
  Receive Date: 20230127
  Receipt Date: 20230127
  Transmission Date: 20230417
  Serious: Yes (Disabling)
  Sender: FDA-Public Use
  Company Number: None

PATIENT
  Sex: 0

DRUGS (3)
  1. MELOXICAM [Suspect]
     Active Substance: MELOXICAM
     Indication: Rotator cuff syndrome
     Dosage: OTHER QUANTITY : 1 TABLET(S);?FREQUENCY : AS NEEDED;?
     Route: 048
     Dates: start: 20230125, end: 20230127
  2. MELOXICAM [Suspect]
     Active Substance: MELOXICAM
     Indication: Pain
  3. MELOXICAM [Suspect]
     Active Substance: MELOXICAM
     Indication: Inflammation

REACTIONS (3)
  - Tinnitus [None]
  - Insomnia [None]
  - Therapy cessation [None]

NARRATIVE: CASE EVENT DATE: 20230126
